FAERS Safety Report 20515794 (Version 2)
Quarter: 2022Q2

REPORT INFORMATION
  Report Type: Spontaneous
  Country: US (occurrence: US)
  Receive Date: 20220224
  Receipt Date: 20220526
  Transmission Date: 20220721
  Serious: No
  Sender: FDA-Public Use
  Company Number: US-BANNER LIFE SCIENCES, LLC-2021BAN000138

PATIENT

DRUGS (1)
  1. BAFIERTAM [Suspect]
     Active Substance: MONOMETHYL FUMARATE
     Indication: Multiple sclerosis
     Dosage: 95MG-190MG, BID
     Route: 048
     Dates: start: 20211105

REACTIONS (4)
  - Flushing [Not Recovered/Not Resolved]
  - Nausea [Not Recovered/Not Resolved]
  - Memory impairment [Not Recovered/Not Resolved]
  - Inappropriate schedule of product administration [Unknown]

NARRATIVE: CASE EVENT DATE: 20211101
